FAERS Safety Report 9685334 (Version 2)
Quarter: 2013Q4

REPORT INFORMATION
  Report Type: Spontaneous
  Country: US (occurrence: US)
  Receive Date: 20131113
  Receipt Date: 20131126
  Transmission Date: 20140711
  Serious: Yes (Hospitalization)
  Sender: FDA-Public Use
  Company Number: PHEH2013US023540

PATIENT
  Age: 39 Year
  Sex: Female

DRUGS (6)
  1. GILENYA [Suspect]
     Indication: MULTIPLE SCLEROSIS
     Dosage: 0.5 MG, QD
     Route: 048
     Dates: start: 2010, end: 20131110
  2. ZOLOFT [Concomitant]
  3. TRAZODONE [Concomitant]
  4. NALTREXONE [Concomitant]
  5. LORATADINE [Concomitant]
  6. AMPYRA [Concomitant]

REACTIONS (4)
  - Pericarditis [Not Recovered/Not Resolved]
  - Exercise tolerance decreased [Unknown]
  - Chest pain [Unknown]
  - Dyspnoea [Unknown]
